FAERS Safety Report 5094995-3 (Version None)
Quarter: 2006Q3

REPORT INFORMATION
  Report Type: 
  Country: None (occurrence: None)
  Receive Date: 20060901
  Receipt Date: 20060824
  Transmission Date: 20061208
  Serious: Yes (Hospitalization)
  Sender: FDA-Public Use
  Company Number: FR-BRISTOL-MYERS SQUIBB COMPANY-13487152

PATIENT
  Sex: Female
  Weight: 2 kg

DRUGS (4)
  1. BLEOMYCIN SULFATE [Suspect]
     Indication: HODGKIN'S DISEASE
     Route: 064
     Dates: start: 20060202
  2. ADRIBLASTINE [Suspect]
     Indication: HODGKIN'S DISEASE
     Route: 064
     Dates: start: 20060202, end: 20060501
  3. VINBLASTINE [Suspect]
     Indication: HODGKIN'S DISEASE
     Route: 064
     Dates: start: 20060202, end: 20060501
  4. ZOPHREN [Concomitant]
     Route: 064

REACTIONS (2)
  - PREMATURE BABY [None]
  - RESPIRATORY DISTRESS [None]
